FAERS Safety Report 24751693 (Version 1)
Quarter: 2024Q4

REPORT INFORMATION
  Report Type: Spontaneous
  Country: US (occurrence: US)
  Receive Date: 20241219
  Receipt Date: 20241219
  Transmission Date: 20250115
  Serious: No
  Sender: REVANCE THERAPEUTICS
  Company Number: US-REVANCE THERAPEUTICS INC.-US-REV-2024-000596

PATIENT

DRUGS (2)
  1. DAXIBOTULINUMTOXIN A-LANM [Suspect]
     Active Substance: DAXIBOTULINUMTOXIN A-LANM
     Indication: Skin wrinkling
     Dosage: TOTAL 64 U: GLABELLAR (16 UNITS), CROW^S FEET (24 UNITS), LIP (8 UNITS), BUNNY LINES (8 UNITS) AND C
     Route: 065
     Dates: start: 20240918
  2. DAXIBOTULINUMTOXIN A-LANM [Suspect]
     Active Substance: DAXIBOTULINUMTOXIN A-LANM
     Dosage: TOTAL 64 U: GLABELLAR (24 UNITS), BUNNY LINES (6 UNITS), CROW^S FEET (12 UNITS), LIP (8 UNITS) AND C
     Route: 065
     Dates: start: 20240918

REACTIONS (3)
  - Neck pain [Not Recovered/Not Resolved]
  - Headache [Not Recovered/Not Resolved]
  - Off label use [Unknown]

NARRATIVE: CASE EVENT DATE: 20240918
